FAERS Safety Report 7500085 (Version 2)
Quarter: 2013Q3

REPORT INFORMATION
  Report Type: Spontaneous
  Country: US (occurrence: US)
  Receive Date: 20100723
  Receipt Date: 20130729
  Transmission Date: 20140515
  Serious: Yes (Other)
  Sender: FDA-Public Use
  Company Number: US-PFIZER INC-2008093293

PATIENT
  Age: 58 Year
  Sex: Female
  Weight: 59.86 kg

DRUGS (17)
  1. CHANTIX [Suspect]
     Indication: SMOKING CESSATION THERAPY
     Dosage: 0.5 MG, 1X/DAY
     Route: 048
     Dates: start: 20081101, end: 20081102
  2. ALBUTEROL [Concomitant]
  3. IPRATROPIUM [Concomitant]
  4. PULMICORT [Concomitant]
  5. LORTAB [Concomitant]
     Dosage: 10 MG/325 MG EVERY FOUR HOURS
  6. CALCIUM [Concomitant]
  7. OXYGEN [Concomitant]
  8. PREMARIN [Concomitant]
     Dosage: UNK
  9. DUONEB [Concomitant]
     Dosage: UNK
  10. PREDNISONE [Concomitant]
     Dosage: UNK
  11. SKELAXIN [Concomitant]
     Dosage: UNK
  12. ACETYLSALICYLIC ACID [Concomitant]
     Dosage: UNK
  13. EXCEDRIN /USA/ [Concomitant]
     Dosage: UNK
  14. CLONOPIN [Concomitant]
     Dosage: UNK
  15. VALIUM [Concomitant]
     Dosage: UNK
  16. FLEXERIL [Concomitant]
     Dosage: UNK
  17. AUGMENTIN [Concomitant]
     Dosage: UNK

REACTIONS (6)
  - Chest pain [Recovered/Resolved]
  - Dyspnoea [Recovered/Resolved]
  - Presyncope [Recovered/Resolved]
  - Abdominal pain upper [Recovered/Resolved]
  - Hyperhidrosis [Recovered/Resolved]
  - Initial insomnia [Recovered/Resolved]
